FAERS Safety Report 17731292 (Version 1)
Quarter: 2020Q2

REPORT INFORMATION
  Report Type: Spontaneous
  Country: US (occurrence: US)
  Receive Date: 20200430
  Receipt Date: 20200430
  Transmission Date: 20200714
  Serious: Yes (Hospitalization)
  Sender: FDA-Public Use
  Company Number: US-PURDUE-USA-2020-0152296

PATIENT
  Age: 69 Year
  Sex: Female

DRUGS (5)
  1. FENTANYL                           /00174602/ [Suspect]
     Active Substance: FENTANYL
     Dosage: 25 MCG, UNK
     Route: 062
  2. MORPHINE                           /00036302/ [Suspect]
     Active Substance: MORPHINE
     Indication: PAIN
     Dosage: UNK
     Route: 042
  3. OXYCODONE/ ACETAMINOPHEN TABLETS [Suspect]
     Active Substance: ACETAMINOPHEN\OXYCODONE HYDROCHLORIDE
     Indication: PAIN
     Dosage: 10/325 MG, UNK
     Route: 048
     Dates: start: 2008, end: 20170731
  4. FENTANYL                           /00174602/ [Suspect]
     Active Substance: FENTANYL
     Indication: PAIN
     Dosage: 50 MCG, UNK
     Route: 062
     Dates: end: 20170731
  5. FENTANYL                           /00174602/ [Suspect]
     Active Substance: FENTANYL
     Dosage: 12.5 MCG, UNK
     Route: 062
     Dates: start: 2012

REACTIONS (11)
  - Nausea [Recovered/Resolved]
  - Hyperhidrosis [Recovered/Resolved]
  - Abdominal pain upper [Recovered/Resolved]
  - Drug withdrawal syndrome [Recovered/Resolved]
  - Vomiting [Recovered/Resolved]
  - Blood pressure abnormal [Recovered/Resolved]
  - Hospitalisation [Recovered/Resolved]
  - Retching [Recovered/Resolved]
  - Incoherent [Recovered/Resolved]
  - Depressed mood [Recovered/Resolved]
  - Asthenia [Recovered/Resolved]

NARRATIVE: CASE EVENT DATE: 20170731
